FAERS Safety Report 6157886-2 (Version None)
Quarter: 2009Q2

REPORT INFORMATION
  Report Type: 
  Country: None (occurrence: None)
  Receive Date: 20090417
  Receipt Date: 20070925
  Transmission Date: 20091009
  Serious: Yes (Hospitalization)
  Sender: FDA-Public Use
  Company Number: US-ASTRAZENECA-2007UW08822

PATIENT
  Age: 34 Year
  Sex: Male
  Weight: 127 kg

DRUGS (52)
  1. SEROQUEL [Suspect]
     Indication: SLEEP DISORDER
     Route: 048
     Dates: start: 20030101
  2. SEROQUEL [Suspect]
     Dosage: 100-300MG
     Route: 048
     Dates: start: 20050606
  3. ABILIFY [Suspect]
     Dates: start: 20040101
  4. GEODON [Suspect]
     Dates: start: 20040101
  5. HALDOL [Suspect]
     Dates: start: 20040101
  6. EFFEXOR [Suspect]
     Dates: start: 20020101
  7. ZOLOFT [Concomitant]
  8. VIOXX [Concomitant]
  9. TRAMADOL [Concomitant]
  10. PEPCID [Concomitant]
  11. PERCOCET [Concomitant]
  12. ASPIRIN [Concomitant]
  13. PHENERGAN [Concomitant]
  14. SODIUM CHLORIDE [Concomitant]
  15. NICOTINE [Concomitant]
  16. DIPHENHYDRAMINE HCL [Concomitant]
  17. AMBIEN [Concomitant]
  18. KLONOPIN [Concomitant]
  19. RISPERDAL [Concomitant]
  20. ZYPREXA [Concomitant]
  21. TRAZODONE HCL [Concomitant]
  22. BUSPAR [Concomitant]
  23. ATIVAN [Concomitant]
  24. COGENTIN [Concomitant]
  25. TYLENOL [Concomitant]
  26. LEXAPRO [Concomitant]
  27. MORPHINE SULFATE [Concomitant]
  28. ZOLPIDEM TARTRATE [Concomitant]
  29. METFORMIN HCL [Concomitant]
  30. ATENOLOL [Concomitant]
  31. PROTONIX [Concomitant]
  32. LOPRESSOR [Concomitant]
  33. CIPROFLOXACIN [Concomitant]
  34. LANSOPRAZOLE [Concomitant]
  35. LOPERAMIDE HCL [Concomitant]
  36. COZAAR [Concomitant]
  37. AMOXICILLIN [Concomitant]
  38. AUGMENTIN '125' [Concomitant]
  39. DILAUDID [Concomitant]
  40. CLONIDINE [Concomitant]
  41. UNASYN [Concomitant]
  42. METOCLOPRAMIDE [Concomitant]
  43. ZOFRAN [Concomitant]
  44. VANCOMYCIN HCL [Concomitant]
  45. FLAGYL [Concomitant]
  46. ERYTHROMYCIN [Concomitant]
  47. NEURONTIN [Concomitant]
  48. HALOPERIDOL [Concomitant]
  49. KEROLAC [Concomitant]
  50. BOTULINUM TOXIN [Concomitant]
  51. GLYBURIDE [Concomitant]
  52. TORADOL [Concomitant]

REACTIONS (28)
  - ABDOMINAL PAIN [None]
  - ABDOMINAL PAIN LOWER [None]
  - ACUTE CORONARY SYNDROME [None]
  - ANXIETY [None]
  - BRONCHITIS [None]
  - CELLULITIS [None]
  - CHEST PAIN [None]
  - CHOLECYSTITIS ACUTE [None]
  - COUGH [None]
  - DEPRESSION [None]
  - DIABETES MELLITUS [None]
  - DIARRHOEA [None]
  - DRUG ABUSE [None]
  - GASTROENTERITIS [None]
  - HAEMATOCHEZIA [None]
  - HYPERHIDROSIS [None]
  - IMPAIRED GASTRIC EMPTYING [None]
  - NAUSEA [None]
  - OROPHARYNGEAL PAIN [None]
  - OTITIS MEDIA [None]
  - RESPIRATORY TRACT CONGESTION [None]
  - SUICIDE ATTEMPT [None]
  - SYNCOPE [None]
  - TOOTH ABSCESS [None]
  - TOOTHACHE [None]
  - TYMPANIC MEMBRANE PERFORATION [None]
  - UPPER RESPIRATORY TRACT INFECTION [None]
  - VOMITING [None]
